FAERS Safety Report 21576492 (Version 1)
Quarter: 2022Q4

REPORT INFORMATION
  Report Type: Spontaneous
  Country: US (occurrence: US)
  Receive Date: 20221110
  Receipt Date: 20221110
  Transmission Date: 20230113
  Serious: No
  Sender: FDA-Public Use
  Company Number: US-BRISTOL-MYERS SQUIBB COMPANY-2022-134873

PATIENT
  Age: 87 Year
  Sex: Male
  Weight: 79.74 kg

DRUGS (1)
  1. REVLIMID [Suspect]
     Active Substance: LENALIDOMIDE
     Indication: Plasma cell myeloma
     Route: 065

REACTIONS (3)
  - Hypotension [Unknown]
  - Memory impairment [Unknown]
  - Confusional state [Unknown]

NARRATIVE: CASE EVENT DATE: 20220101
